FAERS Safety Report 18233377 (Version 1)
Quarter: 2020Q3

REPORT INFORMATION
  Report Type: Spontaneous
  Country: US (occurrence: US)
  Receive Date: 20200904
  Receipt Date: 20200904
  Transmission Date: 20201103
  Serious: Yes (Disabling, Other)
  Sender: FDA-Public Use
  Company Number: None

PATIENT
  Age: 54 Year
  Sex: Female
  Weight: 78.75 kg

DRUGS (11)
  1. FIORICET [Concomitant]
     Active Substance: ACETAMINOPHEN\BUTALBITAL\CAFFEINE
  2. MAGNESIUM [Concomitant]
     Active Substance: MAGNESIUM
  3. AIMOVIG [Suspect]
     Active Substance: ERENUMAB-AOOE
     Indication: MIGRAINE
     Route: 058
     Dates: start: 20200316, end: 20200616
  4. IBUPROFEN. [Concomitant]
     Active Substance: IBUPROFEN
  5. VITAMINS B?12 [Concomitant]
  6. VITAMIN D3 [Concomitant]
     Active Substance: CHOLECALCIFEROL
  7. PERCOCET [Concomitant]
     Active Substance: ACETAMINOPHEN\OXYCODONE HYDROCHLORIDE
  8. BISOPROLOL FUMARATE. [Concomitant]
     Active Substance: BISOPROLOL FUMARATE
  9. ATORVASTATIN [Concomitant]
     Active Substance: ATORVASTATIN
  10. LAMOTRIGINE. [Concomitant]
     Active Substance: LAMOTRIGINE
  11. CLIMARA HORMONE PATCH [Concomitant]

REACTIONS (6)
  - Neuralgia [None]
  - Pain in extremity [None]
  - Injection site pain [None]
  - Myalgia [None]
  - Paraesthesia [None]
  - Feeling hot [None]
